FAERS Safety Report 14203613 (Version 2)
Quarter: 2018Q2

REPORT INFORMATION
  Report Type: Report from Study
  Country: US (occurrence: US)
  Receive Date: 20171120
  Receipt Date: 20180510
  Transmission Date: 20180711
  Serious: Yes (Hospitalization, Other)
  Sender: FDA-Public Use
  Company Number: US-AMGEN-USASL2017171456

PATIENT
  Age: 63 Year
  Sex: Female
  Weight: 73.92 kg

DRUGS (5)
  1. REPATHA [Suspect]
     Active Substance: EVOLOCUMAB
     Indication: HYPERCHOLESTEROLAEMIA
  2. REPATHA [Suspect]
     Active Substance: EVOLOCUMAB
     Indication: BLOOD CHOLESTEROL ABNORMAL
     Dosage: 140 MG, Q2WK
     Route: 058
     Dates: start: 201711, end: 20180112
  3. REPATHA [Suspect]
     Active Substance: EVOLOCUMAB
     Indication: HYPERLIPIDAEMIA
  4. LOVAZA [Concomitant]
     Active Substance: OMEGA-3-ACID ETHYL ESTERS
     Indication: HYPERTRIGLYCERIDAEMIA
     Dosage: 1 G, BID
     Dates: start: 2003
  5. REPATHA [Suspect]
     Active Substance: EVOLOCUMAB
     Indication: HYPERTRIGLYCERIDAEMIA

REACTIONS (14)
  - Oropharyngeal pain [Not Recovered/Not Resolved]
  - Osteoporosis [Recovered/Resolved]
  - Tremor [Unknown]
  - Asthenia [Unknown]
  - Feeling abnormal [Unknown]
  - Dysphagia [Recovered/Resolved]
  - Fatigue [Recovered/Resolved]
  - Musculoskeletal disorder [Unknown]
  - Pain [Not Recovered/Not Resolved]
  - Chronic obstructive pulmonary disease [Unknown]
  - Arthralgia [Recovered/Resolved]
  - Temperature intolerance [Unknown]
  - Arthritis [Recovered/Resolved]
  - Fibromyalgia [Recovered/Resolved]

NARRATIVE: CASE EVENT DATE: 2017
